FAERS Safety Report 6313881-1 (Version None)
Quarter: 2009Q3

REPORT INFORMATION
  Report Type: 
  Country: None (occurrence: None)
  Receive Date: 20090818
  Receipt Date: 20090817
  Transmission Date: 20100115
  Serious: Yes (Other)
  Sender: FDA-Public Use
  Company Number: US-ROXANE LABORATORIES, INC.-2009-RO-00834RO

PATIENT
  Age: 52 Year
  Sex: Female

DRUGS (4)
  1. PREDNISONE [Suspect]
  2. MYCOPHENOLATE MOFETIL [Suspect]
     Indication: MYASTHENIA GRAVIS
     Dosage: 250 MG
     Route: 048
     Dates: start: 20090706
  3. CELLCEPT [Suspect]
     Indication: MYASTHENIA GRAVIS
     Dosage: 500 MG
     Route: 048
     Dates: start: 20070101
  4. BONIVA [Suspect]
     Indication: RESORPTION BONE INCREASED
     Route: 048
     Dates: start: 20090301

REACTIONS (4)
  - MUSCULAR WEAKNESS [None]
  - RESORPTION BONE INCREASED [None]
  - SKIN CANCER [None]
  - VISUAL IMPAIRMENT [None]
